FAERS Safety Report 21938833 (Version 1)
Quarter: 2023Q1

REPORT INFORMATION
  Report Type: Report from Study
  Country: US (occurrence: US)
  Receive Date: 20230201
  Receipt Date: 20230201
  Transmission Date: 20230418
  Serious: Yes (Death)
  Sender: FDA-Public Use
  Company Number: US-EXELIXIS-CABO-22051445

PATIENT
  Sex: Male
  Weight: 63.2 kg

DRUGS (1)
  1. CABOMETYX [Suspect]
     Active Substance: CABOZANTINIB S-MALATE
     Indication: Osteosarcoma
     Dosage: 20 MG, QD
     Route: 048
     Dates: start: 20220201, end: 20220406

REACTIONS (2)
  - Malignant neoplasm progression [Fatal]
  - Off label use [Unknown]
